FAERS Safety Report 20887217 (Version 1)
Quarter: 2022Q2

REPORT INFORMATION
  Report Type: Spontaneous
  Country: US (occurrence: US)
  Receive Date: 20220528
  Receipt Date: 20220528
  Transmission Date: 20220721
  Serious: Yes (Other)
  Sender: FDA-Public Use
  Company Number: US-TEVA-2022-US-2040829

PATIENT
  Age: 71 Year
  Sex: Female

DRUGS (3)
  1. LISINOPRIL [Suspect]
     Active Substance: LISINOPRIL
     Indication: Product used for unknown indication
     Route: 065
  2. TYVASO [Suspect]
     Active Substance: TREPROSTINIL
     Indication: Pulmonary arterial hypertension
     Route: 055
     Dates: start: 20210907
  3. TYVASO [Suspect]
     Active Substance: TREPROSTINIL
     Dosage: 240 MICROGRAM DAILY;
     Route: 055
     Dates: start: 20210907

REACTIONS (5)
  - Angioedema [Recovered/Resolved]
  - Paraesthesia oral [Unknown]
  - Lip pain [Unknown]
  - Lip swelling [Unknown]
  - Oral discomfort [Unknown]

NARRATIVE: CASE EVENT DATE: 20220101
